FAERS Safety Report 5293350-0 (Version None)
Quarter: 2007Q2

REPORT INFORMATION
  Report Type: 
  Country: None (occurrence: None)
  Receive Date: 20070411
  Receipt Date: 20070405
  Transmission Date: 20071010
  Serious: Yes (Disabling)
  Sender: FDA-Public Use
  Company Number: US-MERCK-0703USA03892

PATIENT
  Age: 84 Year
  Sex: Female
  Weight: 84 kg

DRUGS (6)
  1. JANUVIA [Suspect]
     Indication: DIABETES MELLITUS
     Route: 048
     Dates: start: 20061204, end: 20070207
  2. ACTOS [Concomitant]
     Indication: DIABETES MELLITUS
     Route: 065
  3. GLIMEPIRIDE [Concomitant]
     Indication: DIABETES MELLITUS
     Route: 065
  4. ZETIA [Concomitant]
     Indication: LIPIDS
     Route: 065
  5. HYZAAR [Concomitant]
     Indication: HYPERTENSION
     Route: 065
  6. ATENOLOL [Concomitant]
     Indication: HYPERTENSION
     Route: 065

REACTIONS (6)
  - BLOOD TRIGLYCERIDES INCREASED [None]
  - BLOOD UREA NITROGEN/CREATININE RATIO INCREASED [None]
  - CARBON DIOXIDE DECREASED [None]
  - CHILLS [None]
  - DYSPNOEA [None]
  - OEDEMA PERIPHERAL [None]
